FAERS Safety Report 9721399 (Version 2)
Quarter: 2014Q1

REPORT INFORMATION
  Report Type: Report from Study
  Country: BR (occurrence: BR)
  Receive Date: 20131129
  Receipt Date: 20140226
  Transmission Date: 20141002
  Serious: Yes (Life-Threatening, Other)
  Sender: FDA-Public Use
  Company Number: BR-ELI_LILLY_AND_COMPANY-BR201311007860

PATIENT
  Age: 61 Year
  Sex: Female
  Weight: 59.5 kg

DRUGS (9)
  1. LISPRO REGLISPRO [Suspect]
     Indication: TYPE 2 DIABETES MELLITUS
     Dosage: UNK, TID
     Route: 058
     Dates: start: 2001
  2. ACTOS [Concomitant]
     Indication: PRODUCT USED FOR UNKNOWN INDICATION
     Dosage: 30 MG, QD
     Route: 065
  3. GLIFAGE [Concomitant]
     Indication: PRODUCT USED FOR UNKNOWN INDICATION
     Dosage: 20 MG, QD
     Route: 065
  4. EUTIROX [Concomitant]
     Indication: THYROID DISORDER
     Dosage: 100 MG, QD
     Route: 065
  5. SERTRALINA [Concomitant]
     Indication: PRODUCT USED FOR UNKNOWN INDICATION
     Dosage: 50 MG, QD
     Route: 065
  6. LEXOTAN [Concomitant]
     Indication: PRODUCT USED FOR UNKNOWN INDICATION
     Dosage: 3 MG, EACH EVENING
     Route: 065
  7. LEXOTAN [Concomitant]
     Dosage: UNK, EACH MORNING
     Route: 065
  8. LEXOTAN [Concomitant]
     Dosage: UNK, QD
     Route: 065
  9. ZOLPIDEM [Concomitant]
     Indication: PRODUCT USED FOR UNKNOWN INDICATION
     Dosage: UNK, EACH EVENING
     Route: 065

REACTIONS (7)
  - Hypoglycaemic unconsciousness [Recovered/Resolved]
  - Convulsion [Recovered/Resolved]
  - Peripheral ischaemia [Unknown]
  - Meniscus injury [Unknown]
  - Thrombosis [Unknown]
  - Pain in extremity [Not Recovered/Not Resolved]
  - Diabetes mellitus inadequate control [Unknown]
